FAERS Safety Report 7464887-0 (Version None)
Quarter: 2011Q2

REPORT INFORMATION
  Report Type: 
  Country: None (occurrence: None)
  Receive Date: 20110509
  Receipt Date: 20110428
  Transmission Date: 20111010
  Serious: No
  Sender: FDA-Public Use
  Company Number: US-ROXANE LABORATORIES, INC.-2011-RO-00628RO

PATIENT
  Sex: Female

DRUGS (4)
  1. ATIVAN [Concomitant]
     Dosage: 2 MG
  2. LITHIUM CARBONATE [Suspect]
     Indication: BIPOLAR DISORDER
     Dosage: 600 MG
     Route: 048
  3. QUASENSE [Concomitant]
     Indication: CONTRACEPTION
  4. LAMICTAL [Concomitant]
     Dosage: 300 MG

REACTIONS (5)
  - DIARRHOEA [None]
  - BACK PAIN [None]
  - DYSPNOEA [None]
  - ABNORMAL FAECES [None]
  - FLANK PAIN [None]
